FAERS Safety Report 21433821 (Version 2)
Quarter: 2022Q4

REPORT INFORMATION
  Report Type: Other
  Country: US (occurrence: None)
  Receive Date: 20221010
  Receipt Date: 20221017
  Transmission Date: 20230112
  Serious: Yes (Hospitalization)
  Sender: FDA-Public Use
  Company Number: US-ROCHE-3193812

PATIENT
  Age: 54 Year
  Sex: Male

DRUGS (1)
  1. HEMLIBRA [Suspect]
     Active Substance: EMICIZUMAB-KXWH
     Indication: Haemophilia
     Dosage: INJECT 210 MILLIGRAMS (3 MG/KG) SUBCUTANEOUSLY EVERY 2 WEEK(S) AS A MAINTENANCE DOSE
     Route: 058

REACTIONS (1)
  - Infection [Unknown]
